FAERS Safety Report 13418549 (Version 3)
Quarter: 2017Q4

REPORT INFORMATION
  Report Type: Report from Study
  Country: MW (occurrence: MW)
  Receive Date: 20170406
  Receipt Date: 20171121
  Transmission Date: 20180320
  Serious: Yes (Hospitalization, Other)
  Sender: FDA-Public Use
  Company Number: MW-GILEAD-2017-0266019

PATIENT
  Age: 34 Year
  Sex: Male
  Weight: 68 kg

DRUGS (6)
  1. VINCRISTINE [Concomitant]
     Active Substance: VINCRISTINE
  2. COTRIMOXAZOLE [Concomitant]
     Active Substance: SULFAMETHOXAZOLE\TRIMETHOPRIM
     Dosage: UNK
     Dates: start: 20140916
  3. BLEOMYCIN [Concomitant]
     Active Substance: BLEOMYCIN SULFATE
  4. ETOPOSIDE. [Suspect]
     Active Substance: ETOPOSIDE
     Indication: KAPOSI^S SARCOMA AIDS RELATED
     Dosage: 100 MG, EVERY MONTH
     Route: 048
     Dates: start: 20140917, end: 20150211
  5. EFAVIRENZ/EMTRICITABINE/TENOFOVIR DISOPROXIL FUMARATE [Suspect]
     Active Substance: EFAVIRENZ\EMTRICITABINE\TENOFOVIR DISOPROXIL FUMARATE
     Indication: KAPOSI^S SARCOMA AIDS RELATED
     Dosage: 1100 MG, QD
     Route: 048
     Dates: start: 20140917, end: 20170320
  6. PACLITAXEL. [Suspect]
     Active Substance: PACLITAXEL
     Indication: KAPOSI^S SARCOMA AIDS RELATED
     Dosage: 192 MG, EVERY MONTH
     Route: 042
     Dates: start: 20150527, end: 20150908

REACTIONS (2)
  - Abnormal loss of weight [Recovering/Resolving]
  - Extrapulmonary tuberculosis [Recovered/Resolved]

NARRATIVE: CASE EVENT DATE: 20170321
